FAERS Safety Report 6495837-1 (Version None)
Quarter: 2009Q4

REPORT INFORMATION
  Report Type: 
  Country: None (occurrence: None)
  Receive Date: 20091214
  Receipt Date: 20090824
  Transmission Date: 20100525
  Serious: Yes (Hospitalization)
  Sender: FDA-Public Use
  Company Number: US-BRISTOL-MYERS SQUIBB COMPANY-14747109

PATIENT
  Age: 31 Year
  Sex: Female
  Weight: 91 kg

DRUGS (3)
  1. ABILIFY [Suspect]
     Indication: BIPOLAR DISORDER
     Dates: start: 20090730, end: 20090808
  2. PAXIL [Suspect]
  3. LUNESTA [Concomitant]

REACTIONS (8)
  - AKATHISIA [None]
  - ANXIETY [None]
  - CONFUSIONAL STATE [None]
  - HOT FLUSH [None]
  - INSOMNIA [None]
  - TACHYCARDIA [None]
  - TACHYPHRENIA [None]
  - TARDIVE DYSKINESIA [None]
